FAERS Safety Report 26137639 (Version 2)
Quarter: 2025Q4

REPORT INFORMATION
  Report Type: Report from Study
  Country: PR (occurrence: PR)
  Receive Date: 20251209
  Receipt Date: 20251212
  Transmission Date: 20260117
  Serious: Yes (Death, Other)
  Sender: ABBVIE
  Company Number: PR-ABBVIE-6582093

PATIENT
  Age: 71 Year
  Sex: Female

DRUGS (2)
  1. SKYRIZI [Suspect]
     Active Substance: RISANKIZUMAB-RZAA
     Indication: Crohn^s disease
     Route: 058
     Dates: start: 20250805
  2. SKYRIZI [Suspect]
     Active Substance: RISANKIZUMAB-RZAA
     Route: 058
     Dates: start: 202507, end: 2025

REACTIONS (5)
  - Death [Fatal]
  - Loss of consciousness [Unknown]
  - Diarrhoea [Unknown]
  - Pain [Unknown]
  - Vital capacity decreased [Unknown]

NARRATIVE: CASE EVENT DATE: 20250101
